FAERS Safety Report 8949395 (Version 1)
Quarter: 2012Q4

REPORT INFORMATION
  Report Type: 
  Country: FR (occurrence: FR)
  Receive Date: 20121206
  Receipt Date: 20121206
  Transmission Date: 20130627
  Serious: Yes (Hospitalization, Other)
  Sender: FDA-Public Use
  Company Number: FR-ELI_LILLY_AND_COMPANY-FR201211008123

PATIENT
  Age: 44 Year
  Sex: Female

DRUGS (7)
  1. ZYPREXA [Suspect]
     Indication: SCHIZOPHRENIA
     Dosage: 1 DF, unknown
  2. HALDOL [Concomitant]
  3. RISPERDAL [Concomitant]
  4. LEPONEX [Concomitant]
     Indication: SCHIZOPHRENIA
     Dosage: 1 DF, unknown
  5. CRESTOR [Concomitant]
     Dosage: 1 DF, unknown
  6. ASPEGIC [Concomitant]
     Dosage: 1 DF, unknown
  7. CONTRACEPTIVES [Concomitant]
     Dosage: 1 DF, unknown

REACTIONS (2)
  - Arteritis [Unknown]
  - Cerebrovascular accident [Unknown]
